FAERS Safety Report 23351392 (Version 1)
Quarter: 2023Q4

REPORT INFORMATION
  Report Type: Spontaneous
  Country: US (occurrence: US)
  Receive Date: 20231229
  Receipt Date: 20231229
  Transmission Date: 20240110
  Serious: Yes (Other)
  Sender: FDA-Public Use
  Company Number: US-Rhythm Pharmaceuticals, Inc.-2023RHM000320

PATIENT
  Age: 14 Year
  Sex: Female

DRUGS (8)
  1. IMCIVREE [Suspect]
     Active Substance: SETMELANOTIDE
     Indication: Laurence-Moon-Bardet-Biedl syndrome
     Route: 058
  2. IMCIVREE [Suspect]
     Active Substance: SETMELANOTIDE
     Route: 058
  3. IMCIVREE [Suspect]
     Active Substance: SETMELANOTIDE
     Route: 058
  4. IMCIVREE [Suspect]
     Active Substance: SETMELANOTIDE
     Route: 058
  5. VITAMIN D [Concomitant]
     Active Substance: VITAMIN D NOS
     Indication: Product used for unknown indication
     Route: 065
  6. MONTELUKAST [Concomitant]
     Active Substance: MONTELUKAST SODIUM
     Indication: Product used for unknown indication
     Route: 065
  7. FAMOTIDINE [Concomitant]
     Active Substance: FAMOTIDINE
     Indication: Product used for unknown indication
     Route: 065
  8. BENADRYL [Concomitant]
     Active Substance: DIPHENHYDRAMINE HYDROCHLORIDE
     Indication: Product used for unknown indication
     Route: 065

REACTIONS (22)
  - Eye swelling [Recovered/Resolved]
  - Swelling face [Recovered/Resolved]
  - Throat tightness [Recovered/Resolved]
  - Retching [Unknown]
  - Injection site swelling [Recovering/Resolving]
  - Nodule [Recovered/Resolved]
  - Weight decreased [Not Recovered/Not Resolved]
  - Inappropriate schedule of product administration [Recovered/Resolved]
  - Increased appetite [Not Recovered/Not Resolved]
  - Speech disorder [Recovered/Resolved]
  - Feeling hot [Recovered/Resolved]
  - Skin reaction [Unknown]
  - Injection site warmth [Recovered/Resolved]
  - Presyncope [Unknown]
  - Diarrhoea [Not Recovered/Not Resolved]
  - Injection site pruritus [Recovering/Resolving]
  - Skin discolouration [Unknown]
  - Injection site irritation [Recovering/Resolving]
  - Injection site nodule [Recovered/Resolved]
  - Injection site erythema [Recovered/Resolved]
  - Rash [Not Recovered/Not Resolved]
  - Dizziness [Unknown]

NARRATIVE: CASE EVENT DATE: 20230717
